FAERS Safety Report 25116608 (Version 1)
Quarter: 2025Q1

REPORT INFORMATION
  Report Type: Spontaneous
  Country: US (occurrence: US)
  Receive Date: 20250325
  Receipt Date: 20250325
  Transmission Date: 20250409
  Serious: Yes (Hospitalization)
  Sender: NOVO NORDISK
  Company Number: US-NOVOPROD-1393108

PATIENT
  Age: 75 Year
  Sex: Male

DRUGS (1)
  1. OZEMPIC [Suspect]
     Active Substance: SEMAGLUTIDE
     Indication: Type 2 diabetes mellitus
     Route: 058
     Dates: start: 2024

REACTIONS (3)
  - Chronic obstructive pulmonary disease [Recovered/Resolved]
  - Bacterial infection [Recovered/Resolved]
  - Intervertebral disc disorder [Recovered/Resolved]

NARRATIVE: CASE EVENT DATE: 20240505
